FAERS Safety Report 5375062-8 (Version None)
Quarter: 2007Q2

REPORT INFORMATION
  Report Type: 
  Country: None (occurrence: None)
  Receive Date: 20070629
  Receipt Date: 20070522
  Transmission Date: 20071010
  Serious: No
  Sender: FDA-Public Use
  Company Number: A0652439A

PATIENT
  Age: 55 Year
  Sex: Female

DRUGS (6)
  1. AVANDARYL [Suspect]
     Route: 048
     Dates: start: 20061001
  2. HYZAAR [Concomitant]
  3. NEXIUM [Concomitant]
  4. ALLEGRA [Concomitant]
  5. ALBUTEROL [Concomitant]
  6. FUROSEMIDE [Concomitant]

REACTIONS (9)
  - ABDOMINAL DISTENSION [None]
  - DYSPNOEA [None]
  - FALL [None]
  - JOINT SWELLING [None]
  - MUSCLE SPASMS [None]
  - MUSCULAR WEAKNESS [None]
  - MUSCULOSKELETAL STIFFNESS [None]
  - MYALGIA [None]
  - WEIGHT INCREASED [None]
